FAERS Safety Report 9775548 (Version 1)
Quarter: 2013Q4

REPORT INFORMATION
  Report Type: Spontaneous
  Country: US (occurrence: US)
  Receive Date: 20131220
  Receipt Date: 20131220
  Transmission Date: 20140711
  Serious: No
  Sender: FDA-Public Use
  Company Number: US-GALDERMA-US13003723

PATIENT
  Age: 62 Year
  Sex: Female

DRUGS (4)
  1. MIRVASO (BRIMONIDINE) TOPICAL GEL, 0.33% [Suspect]
     Indication: ROSACEA
     Dosage: 0.33%
     Route: 061
     Dates: start: 20131005, end: 20131111
  2. SYNTHROID (LEVOTHYROXINE) [Concomitant]
     Indication: HYPOTHYROIDISM
     Dosage: 112 MCG
     Route: 048
  3. XANAX (ALPRAZOLAM) [Concomitant]
     Indication: ANXIETY
     Dosage: 0.25MG
     Route: 048
  4. PURE GLYCERIN SOAP [Concomitant]
     Indication: THERAPEUTIC SKIN CARE TOPICAL
     Route: 061

REACTIONS (6)
  - Vision blurred [Not Recovered/Not Resolved]
  - Visual acuity reduced [Recovering/Resolving]
  - Condition aggravated [Recovered/Resolved]
  - Feeling hot [Recovered/Resolved]
  - Glossodynia [Recovered/Resolved]
  - Skin burning sensation [Recovered/Resolved]
